FAERS Safety Report 14510902 (Version 1)
Quarter: 2018Q1

REPORT INFORMATION
  Report Type: Spontaneous
  Country: US (occurrence: US)
  Receive Date: 20180208
  Receipt Date: 20180208
  Transmission Date: 20180509
  Serious: No
  Sender: FDA-Public Use
  Company Number: None

PATIENT
  Age: 71 Year
  Sex: Male
  Weight: 109.6 kg

DRUGS (1)
  1. DOCETAXEL. [Suspect]
     Active Substance: DOCETAXEL
     Indication: NEOPLASM MALIGNANT
     Dosage: 175 MG OTHER IV
     Route: 042

REACTIONS (3)
  - Dyspnoea [None]
  - Flushing [None]
  - Respiratory depression [None]

NARRATIVE: CASE EVENT DATE: 20111201
